FAERS Safety Report 22181221 (Version 1)
Quarter: 2023Q2

REPORT INFORMATION
  Report Type: Spontaneous
  Country: US (occurrence: None)
  Receive Date: 20230405
  Receipt Date: 20230405
  Transmission Date: 20230722
  Serious: Yes (Hospitalization)
  Sender: FDA-Public Use
  Company Number: None

PATIENT
  Age: 76 Year
  Sex: Male
  Weight: 95.25 kg

DRUGS (16)
  1. LENALIDOMIDE [Suspect]
     Active Substance: LENALIDOMIDE
     Indication: Plasma cell myeloma
     Dosage: OTHER FREQUENCY : 21D ON 7 D OFF;?
     Route: 048
     Dates: start: 202207
  2. ASPIRIN [Concomitant]
  3. COREG [Concomitant]
  4. LANTUS [Concomitant]
  5. LEVAQUIN [Concomitant]
  6. LIPITOR [Concomitant]
  7. MULTIVITAMIN [Concomitant]
  8. NITROSTAT [Concomitant]
  9. NORCO [Concomitant]
  10. NOVOLOG [Concomitant]
  11. OLANZAPINE [Concomitant]
  12. PLAVIX [Concomitant]
  13. PROCHLORPERAZINE [Concomitant]
  14. VALACYCLOVIR [Concomitant]
  15. VANCOMYCIN [Concomitant]
  16. ZOFRAN [Concomitant]

REACTIONS (1)
  - Toe amputation [None]
